FAERS Safety Report 4382143-4 (Version None)
Quarter: 2004Q2

REPORT INFORMATION
  Report Type: 
  Country: None (occurrence: None)
  Receive Date: 20040617
  Receipt Date: 20030912
  Transmission Date: 20050107
  Serious: No
  Sender: FDA-Public Use
  Company Number: TAP2003Q02162

PATIENT
  Age: 13 Year
  Sex: Male
  Weight: 51.4 kg

DRUGS (2)
  1. LUPRON DEPOT [Suspect]
     Dosage: 11.25 MG, 1 IN 1 M. INTRAMUSCULAR
     Route: 030
     Dates: start: 20030318, end: 20030709
  2. HUMATROPE [Concomitant]

REACTIONS (1)
  - INJECTION SITE REACTION [None]
